FAERS Safety Report 17673777 (Version 3)
Quarter: 2021Q1

REPORT INFORMATION
  Report Type: Spontaneous
  Country: GB (occurrence: GB)
  Receive Date: 20200415
  Receipt Date: 20210201
  Transmission Date: 20210419
  Serious: Yes (Hospitalization, Other)
  Sender: FDA-Public Use
  Company Number: GB-VERTEX PHARMACEUTICALS-2020-002231

PATIENT
  Age: 8 Year
  Sex: Female

DRUGS (12)
  1. CREON [Concomitant]
     Active Substance: PANCRELIPASE AMYLASE\PANCRELIPASE LIPASE\PANCRELIPASE PROTEASE
  2. VITAMIN A + D [Concomitant]
     Active Substance: ERGOCALCIFEROL\RETINOL
  3. ORKAMBI [Suspect]
     Active Substance: IVACAFTOR\LUMACAFTOR
     Indication: CYSTIC FIBROSIS
     Dosage: 2 DOSAGE FORM, BID
     Route: 048
     Dates: start: 20200116, end: 2020
  4. PRO D3 [Concomitant]
     Active Substance: CHOLECALCIFEROL
  5. TOBRAMYCIN. [Concomitant]
     Active Substance: TOBRAMYCIN
     Route: 042
  6. DORNASE ALFA. [Concomitant]
     Active Substance: DORNASE ALFA
  7. ITRACONAZOLE. [Concomitant]
     Active Substance: ITRACONAZOLE
     Dosage: UNK
     Dates: end: 20200201
  8. PARAVIT [Concomitant]
     Active Substance: ACETAMINOPHEN\ASCORBIC ACID
  9. CIPROFLOXACIN. [Concomitant]
     Active Substance: CIPROFLOXACIN
  10. PIPERACILLIN/TAZOBACTAM [Suspect]
     Active Substance: PIPERACILLIN SODIUM\TAZOBACTAM SODIUM
     Indication: PRODUCT USED FOR UNKNOWN INDICATION
     Dosage: UNK
     Route: 042
     Dates: start: 20200107, end: 20200124
  11. FLUTICASONE;SALMETEROL [Concomitant]
     Active Substance: FLUTICASONE PROPIONATE\SALMETEROL XINAFOATE
  12. PHYTOMENADIONE [Concomitant]
     Active Substance: PHYTONADIONE
     Dosage: 10 MG, TABLET

REACTIONS (1)
  - Drug reaction with eosinophilia and systemic symptoms [Recovered/Resolved]

NARRATIVE: CASE EVENT DATE: 20200123
